FAERS Safety Report 10932214 (Version 2)
Quarter: 2015Q2

REPORT INFORMATION
  Report Type: Spontaneous
  Country: US (occurrence: US)
  Receive Date: 20150320
  Receipt Date: 20150526
  Transmission Date: 20150821
  Serious: No
  Sender: FDA-Public Use
  Company Number: US-JNJFOC-20130710633

PATIENT
  Age: 26 Year
  Sex: Male

DRUGS (2)
  1. RISPERDAL [Suspect]
     Active Substance: RISPERIDONE
     Indication: BIPOLAR DISORDER
     Dosage: VARYING DOSES OF 2MG, 3MG, 4MG
     Route: 048
     Dates: start: 2007, end: 2012
  2. SEROQUEL [Concomitant]
     Active Substance: QUETIAPINE FUMARATE
     Indication: SLEEP DISORDER THERAPY
     Dosage: VARYING DOSES 2MG, 4MG AND 50MG
     Route: 048

REACTIONS (6)
  - Emotional distress [Unknown]
  - Blood prolactin increased [Recovering/Resolving]
  - Weight increased [Unknown]
  - Gynaecomastia [Unknown]
  - Back pain [Unknown]
  - Lethargy [Unknown]

NARRATIVE: CASE EVENT DATE: 20130212
